FAERS Safety Report 7837225-9 (Version None)
Quarter: 2011Q4

REPORT INFORMATION
  Report Type: 
  Country: None (occurrence: None)
  Receive Date: 20111024
  Receipt Date: 20110322
  Transmission Date: 20120403
  Serious: No
  Sender: FDA-Public Use
  Company Number: US-ABBOTT-11P-163-0713967-00

PATIENT
  Sex: Female

DRUGS (1)
  1. LUPRON DEPOT [Suspect]
     Indication: ENDOMETRIOSIS
     Dates: start: 20101201, end: 20110301

REACTIONS (4)
  - DEPRESSION [None]
  - WEIGHT INCREASED [None]
  - ABDOMINAL DISTENSION [None]
  - MOOD SWINGS [None]
